FAERS Safety Report 16657315 (Version 1)
Quarter: 2019Q3

REPORT INFORMATION
  Report Type: Spontaneous
  Country: US (occurrence: US)
  Receive Date: 20190801
  Receipt Date: 20190801
  Transmission Date: 20191004
  Serious: Yes (Hospitalization)
  Sender: FDA-Public Use
  Company Number: None

PATIENT
  Age: 57 Year
  Sex: Male

DRUGS (21)
  1. ALLOPURINOL. [Concomitant]
     Active Substance: ALLOPURINOL
     Dates: start: 20190118
  2. CALCIUM/D3 [Concomitant]
     Active Substance: CALCIUM\CHOLECALCIFEROL
     Dates: start: 20170908
  3. GAMMAGARD [Concomitant]
     Active Substance: HUMAN IMMUNOGLOBULIN G
     Dates: start: 20170908
  4. ITRACONAZOLE. [Concomitant]
     Active Substance: ITRACONAZOLE
     Dates: start: 20190730
  5. MULTIVITAMIN [Concomitant]
     Active Substance: VITAMINS
     Dates: start: 20170908
  6. MYCOPHENOLIC [Concomitant]
     Active Substance: MYCOPHENOLIC ACID
     Dates: start: 20190621
  7. TYLENOL [Concomitant]
     Active Substance: ACETAMINOPHEN
     Dates: start: 20040827
  8. VORICONAZOLE. [Concomitant]
     Active Substance: VORICONAZOLE
     Dates: start: 20181011
  9. PREDNISONE. [Concomitant]
     Active Substance: PREDNISONE
     Dates: start: 20170908
  10. MYFORTIC [Concomitant]
     Active Substance: MYCOPHENOLATE SODIUM
     Dates: start: 20170908
  11. NOVOLOG [Concomitant]
     Active Substance: INSULIN ASPART
     Dates: start: 20170908
  12. OSTEO BI-FLX [Concomitant]
     Dates: start: 20170908
  13. SMZ/TMP [Concomitant]
     Active Substance: SULFAMETHOXAZOLE\TRIMETHOPRIM
     Dates: start: 20190730
  14. PROGRAF [Concomitant]
     Active Substance: TACROLIMUS\TACROLIMUS ANHYDROUS
     Dates: start: 20170908
  15. VITAMIN C [Concomitant]
     Active Substance: ASCORBIC ACID
     Dates: start: 20170908
  16. AMBIEN [Concomitant]
     Active Substance: ZOLPIDEM TARTRATE
     Dates: start: 20171115
  17. SODIUM CHLOR [Concomitant]
     Active Substance: SODIUM CHLORIDE
     Dates: start: 20190603
  18. TACROLIMUS. [Concomitant]
     Active Substance: TACROLIMUS
     Dates: start: 20190430
  19. HYQVIA [Suspect]
     Active Substance: HUMAN IMMUNOGLOBULIN G\HYALURONIDASE RECOMBINANT HUMAN
     Indication: IMMUNODEFICIENCY
     Dates: start: 20171117
  20. ATOVAQUONE. [Concomitant]
     Active Substance: ATOVAQUONE
     Dates: start: 20190730
  21. CARVEDILOL. [Concomitant]
     Active Substance: CARVEDILOL
     Dates: start: 20190621

REACTIONS (1)
  - Hospitalisation [None]
